FAERS Safety Report 5642244-7 (Version None)
Quarter: 2008Q1

REPORT INFORMATION
  Report Type: 
  Country: None (occurrence: None)
  Receive Date: 20080212
  Receipt Date: 20080212
  Transmission Date: 20080703
  Serious: Yes (Hospitalization)
  Sender: FDA-Public Use
  Company Number: 230032M08USA

PATIENT
  Age: 41 Year
  Sex: Female

DRUGS (4)
  1. REBIF [Suspect]
     Indication: MULTIPLE SCLEROSIS
     Dosage: 22 MCG
     Dates: start: 20050101
  2. ADVIL [Concomitant]
  3. BACLOFEN [Concomitant]
  4. IMITREX [Concomitant]

REACTIONS (4)
  - INJECTION SITE INFECTION [None]
  - PAIN [None]
  - PYREXIA [None]
  - ULCER [None]
